FAERS Safety Report 9626836 (Version 1)
Quarter: 2013Q4

REPORT INFORMATION
  Report Type: Spontaneous
  Country: CH (occurrence: CH)
  Receive Date: 20131016
  Receipt Date: 20131016
  Transmission Date: 20140711
  Serious: Yes (Hospitalization)
  Sender: FDA-Public Use
  Company Number: CH-PFIZER INC-2013294696

PATIENT
  Age: 90 Year
  Sex: Female

DRUGS (10)
  1. FRAGMIN [Suspect]
     Indication: ATRIAL FIBRILLATION
     Dosage: 1 DF, AS NEEDED
     Route: 058
     Dates: start: 20130925, end: 20130929
  2. FRAGMIN [Suspect]
     Indication: ATRIAL FLUTTER
  3. MARCOUMAR [Suspect]
     Indication: ATRIAL FIBRILLATION
     Dosage: 1 DF, AS NEEDED
     Route: 048
     Dates: start: 20130925, end: 20130929
  4. MARCOUMAR [Suspect]
     Indication: ATRIAL FLUTTER
  5. TOREM [Concomitant]
  6. TRIATEC [Concomitant]
  7. MAGNESIOCARD [Concomitant]
  8. NEURONTIN [Concomitant]
  9. DAFALGAN [Concomitant]
  10. SERESTA [Concomitant]

REACTIONS (7)
  - Drug reaction with eosinophilia and systemic symptoms [Recovering/Resolving]
  - Rash maculo-papular [Recovering/Resolving]
  - Application site reaction [Recovering/Resolving]
  - Pruritus [Recovering/Resolving]
  - Pyrexia [Recovered/Resolved]
  - Blood alkaline phosphatase increased [Recovered/Resolved]
  - Gamma-glutamyltransferase increased [Recovering/Resolving]
